FAERS Safety Report 22067353 (Version 1)
Quarter: 2023Q1

REPORT INFORMATION
  Report Type: Spontaneous
  Country: US (occurrence: US)
  Receive Date: 20230307
  Receipt Date: 20230307
  Transmission Date: 20230417
  Serious: Yes (Life-Threatening)
  Sender: FDA-Public Use
  Company Number: US-STERISCIENCE B.V.-2022-ST-000229

PATIENT
  Age: 32 Year
  Sex: Female

DRUGS (8)
  1. MEROPENEM [Suspect]
     Active Substance: MEROPENEM
     Indication: Mucormycosis
     Dosage: UNK
     Route: 065
  2. VANCOMYCIN [Suspect]
     Active Substance: VANCOMYCIN
     Indication: Mucormycosis
     Dosage: UNK
     Route: 065
  3. VORICONAZOLE [Suspect]
     Active Substance: VORICONAZOLE
     Indication: Mucormycosis
     Dosage: UNK
     Route: 065
  4. AMPHOTERICIN B [Suspect]
     Active Substance: AMPHOTERICIN B
     Indication: Mucormycosis
     Dosage: UNK
     Route: 065
  5. PIPERACILLIN SODIUM\TAZOBACTAM SODIUM [Concomitant]
     Active Substance: PIPERACILLIN SODIUM\TAZOBACTAM SODIUM
     Indication: Product used for unknown indication
     Dosage: UNK
     Route: 065
  6. CYTARABINE [Concomitant]
     Active Substance: CYTARABINE
     Indication: Acute myeloid leukaemia
     Dosage: UNK
     Route: 065
  7. DAUNORUBICIN [Concomitant]
     Active Substance: DAUNORUBICIN
     Indication: Acute myeloid leukaemia
     Dosage: UNK
     Route: 065
  8. AMIKACIN [Concomitant]
     Active Substance: AMIKACIN
     Indication: Febrile neutropenia
     Dosage: UNK
     Route: 065

REACTIONS (1)
  - Drug ineffective for unapproved indication [Unknown]
